FAERS Safety Report 9900267 (Version 2)
Quarter: 2014Q1

REPORT INFORMATION
  Report Type: Spontaneous
  Country: IE (occurrence: IE)
  Receive Date: 20140215
  Receipt Date: 20140307
  Transmission Date: 20141002
  Serious: Yes (Death)
  Sender: FDA-Public Use
  Company Number: IE-ASTRAZENECA-2014SE10059

PATIENT
  Age: 37 Year
  Sex: Male

DRUGS (5)
  1. SEROQUEL [Suspect]
     Indication: ANXIETY
     Dosage: 25 MG IN THE MORNING AND 50 MG IN THE EVENING
     Route: 048
     Dates: start: 20131130, end: 20131130
  2. SEROQUEL [Suspect]
     Indication: SLEEP DISORDER
     Dosage: 25 MG IN THE MORNING AND 50 MG IN THE EVENING
     Route: 048
     Dates: start: 20131130, end: 20131130
  3. SEROXAT [Concomitant]
     Indication: ANXIETY
     Dates: start: 20131104, end: 20131201
  4. SEROXAT [Concomitant]
     Indication: DEPRESSION
     Dates: start: 20131104, end: 20131201
  5. XANAX [Concomitant]
     Indication: ANXIETY
     Dates: start: 20131125, end: 20131129

REACTIONS (2)
  - Suicidal ideation [Fatal]
  - Completed suicide [Fatal]
